FAERS Safety Report 4631146-0 (Version None)
Quarter: 2005Q2

REPORT INFORMATION
  Report Type: 
  Country: None (occurrence: None)
  Receive Date: 20050407
  Receipt Date: 20050407
  Transmission Date: 20051028
  Serious: Yes (Life-Threatening)
  Sender: FDA-Public Use
  Company Number: None

PATIENT
  Sex: Female
  Weight: 46.7205 kg

DRUGS (1)
  1. CELESTONE [Suspect]
     Indication: IDIOPATHIC THROMBOCYTOPENIC PURPURA
     Dosage: 1 TEASPOON   5 TIMES A DAY  NASAL
     Route: 045
     Dates: start: 20050316, end: 20050316

REACTIONS (1)
  - IDIOPATHIC THROMBOCYTOPENIC PURPURA [None]
